FAERS Safety Report 12348136 (Version 5)
Quarter: 2016Q3

REPORT INFORMATION
  Report Type: Spontaneous
  Country: US (occurrence: US)
  Receive Date: 20160509
  Receipt Date: 20160823
  Transmission Date: 20161109
  Serious: Yes (Life-Threatening, Hospitalization, Disabling, Other)
  Sender: FDA-Public Use
  Company Number: US-JNJFOC-20160502134

PATIENT
  Age: 28 Year
  Sex: Female
  Weight: 72.58 kg

DRUGS (1)
  1. ORTHO CYCLEN [Suspect]
     Active Substance: ETHINYL ESTRADIOL\NORGESTIMATE
     Indication: CONTRACEPTION
     Route: 048
     Dates: start: 20140803, end: 20140819

REACTIONS (3)
  - Cerebral venous thrombosis [Recovered/Resolved with Sequelae]
  - Postoperative wound infection [Recovered/Resolved with Sequelae]
  - Seizure [Recovered/Resolved with Sequelae]

NARRATIVE: CASE EVENT DATE: 20140820
